FAERS Safety Report 16122312 (Version 1)
Quarter: 2019Q1

REPORT INFORMATION
  Report Type: Spontaneous
  Country: US (occurrence: US)
  Receive Date: 20190222
  Receipt Date: 20190222
  Transmission Date: 20190418
  Serious: No
  Sender: FDA-Public Use
  Company Number: None

PATIENT
  Age: 62 Year
  Sex: Female
  Weight: 65.77 kg

DRUGS (9)
  1. MULTI VITAMIN [Concomitant]
     Active Substance: VITAMINS
  2. CHLORELLA [Concomitant]
  3. TOULAZ [Concomitant]
  4. LEXAPRO [Suspect]
     Active Substance: ESCITALOPRAM OXALATE
     Indication: MAJOR DEPRESSION
     Dosage: ?          QUANTITY:20 MG MILLIGRAM(S);?
     Route: 048
     Dates: start: 2015
  5. MINERALS [Concomitant]
     Active Substance: MINERALS
  6. CBD OIL [Concomitant]
     Active Substance: CANNABIDIOL\HERBALS
  7. LOSARTAN. [Concomitant]
     Active Substance: LOSARTAN
  8. LEXAPRO [Suspect]
     Active Substance: ESCITALOPRAM OXALATE
     Indication: OBSESSIVE-COMPULSIVE DISORDER
     Dosage: ?          QUANTITY:20 MG MILLIGRAM(S);?
     Route: 048
     Dates: start: 2015
  9. TOFRANIL [Concomitant]
     Active Substance: IMIPRAMINE HYDROCHLORIDE

REACTIONS (2)
  - Irritable bowel syndrome [None]
  - Diarrhoea [None]

NARRATIVE: CASE EVENT DATE: 2015
